FAERS Safety Report 10683826 (Version 1)
Quarter: 2014Q4

REPORT INFORMATION
  Report Type: Report from Study
  Country: CN (occurrence: CN)
  Receive Date: 20141230
  Receipt Date: 20141230
  Transmission Date: 20150529
  Serious: Yes (Other)
  Sender: FDA-Public Use
  Company Number: CN-BRISTOL-MYERS SQUIBB COMPANY-BMS-2014-001861

PATIENT
  Age: 63 Year
  Sex: Male
  Weight: 115 kg

DRUGS (3)
  1. METFORMIN [Concomitant]
     Active Substance: METFORMIN HYDROCHLORIDE
     Route: 065
  2. EXENATIDE [Suspect]
     Active Substance: EXENATIDE
     Indication: DIABETES MELLITUS
     Dosage: 10 ?G, BID
     Route: 058
     Dates: start: 20141001, end: 20141211
  3. EXENATIDE [Suspect]
     Active Substance: EXENATIDE
     Indication: OBESITY

REACTIONS (2)
  - Nasopharyngitis [Not Recovered/Not Resolved]
  - Off label use [Unknown]

NARRATIVE: CASE EVENT DATE: 20141211
